FAERS Safety Report 21976778 (Version 1)
Quarter: 2023Q1

REPORT INFORMATION
  Report Type: Spontaneous
  Country: US (occurrence: US)
  Receive Date: 20230210
  Receipt Date: 20230210
  Transmission Date: 20230417
  Serious: No
  Sender: FDA-Public Use
  Company Number: US-AMGEN-USASP2022228641

PATIENT
  Age: 49 Year
  Sex: Female

DRUGS (3)
  1. OTEZLA [Suspect]
     Active Substance: APREMILAST
     Indication: Disease complication
     Dosage: 30 MILLIGRAM, BID
     Route: 048
     Dates: start: 20221012
  2. OTEZLA [Suspect]
     Active Substance: APREMILAST
     Indication: Off label use
  3. Poly hist forte [Concomitant]
     Indication: Off label use
     Dosage: 10.5-10

REACTIONS (7)
  - Muscle spasms [Unknown]
  - Pharyngitis [Unknown]
  - Condition aggravated [Unknown]
  - Infection [Unknown]
  - Pain [Unknown]
  - Off label use [Unknown]
  - Nausea [Unknown]

NARRATIVE: CASE EVENT DATE: 20220101
